FAERS Safety Report 4277485-7 (Version None)
Quarter: 2004Q1

REPORT INFORMATION
  Report Type: 
  Country: None (occurrence: None)
  Receive Date: 20040122
  Receipt Date: 20040113
  Transmission Date: 20041129
  Serious: Yes (Hospitalization)
  Sender: FDA-Public Use
  Company Number: WAES 0401USA01000

PATIENT
  Age: 61 Year
  Sex: Female

DRUGS (14)
  1. TYLENOL [Concomitant]
  2. ELAVIL [Concomitant]
     Route: 048
  3. PREMARIN [Concomitant]
  4. LASIX [Concomitant]
  5. PRINZIDE [Concomitant]
     Route: 048
  6. SINGULAIR [Concomitant]
     Route: 048
  7. POTASSIUM (UNSPECIFIED) [Concomitant]
  8. PREDNISONE [Concomitant]
  9. ACIPHEX [Concomitant]
  10. VIOXX [Suspect]
     Indication: OSTEOARTHRITIS
     Route: 048
     Dates: start: 20030101, end: 20030101
  11. VIOXX [Suspect]
     Route: 048
     Dates: start: 20040113
  12. VIOXX [Suspect]
     Indication: INTERVERTEBRAL DISC DEGENERATION
     Route: 048
     Dates: start: 20030101, end: 20030101
  13. VIOXX [Suspect]
     Route: 048
     Dates: start: 20040113
  14. DETROL LA [Concomitant]

REACTIONS (8)
  - COLLAPSE OF LUNG [None]
  - DIFFICULTY IN WALKING [None]
  - FAECAL INCONTINENCE [None]
  - FLUID RETENTION [None]
  - NEUROPATHY [None]
  - PNEUMONIA [None]
  - PNEUMOTHORAX [None]
  - URINARY INCONTINENCE [None]
